FAERS Safety Report 4319088-1 (Version None)
Quarter: 2004Q1

REPORT INFORMATION
  Report Type: 
  Country: None (occurrence: None)
  Receive Date: 20040318
  Receipt Date: 20040318
  Transmission Date: 20041129
  Serious: Yes (Life-Threatening, Hospitalization, Disabling)
  Sender: FDA-Public Use
  Company Number: None

PATIENT
  Age: 42 Year
  Sex: Female
  Weight: 101.1521 kg

DRUGS (6)
  1. PROVERA [Suspect]
     Indication: AMENORRHOEA
     Dosage: 1 DAILY ORAL
     Route: 048
     Dates: start: 20031213, end: 20040105
  2. PROVERA [Suspect]
     Indication: MENOPAUSE
     Dosage: 1 DAILY ORAL
     Route: 048
     Dates: start: 20031213, end: 20040105
  3. ESTRATEST [Suspect]
     Indication: AMENORRHOEA
     Dosage: 1 DAILY ORAL
     Route: 048
  4. ESTRATEST [Suspect]
     Indication: MENOPAUSE
     Dosage: 1 DAILY ORAL
     Route: 048
  5. ADDERALL 10 [Concomitant]
  6. PREVACID [Concomitant]

REACTIONS (2)
  - BACK PAIN [None]
  - PULMONARY EMBOLISM [None]
